FAERS Safety Report 17830955 (Version 2)
Quarter: 2020Q2

REPORT INFORMATION
  Report Type: Spontaneous
  Country: IT (occurrence: IT)
  Receive Date: 20200527
  Receipt Date: 20200601
  Transmission Date: 20200714
  Serious: Yes (Other)
  Sender: FDA-Public Use
  Company Number: IT-JNJFOC-20200519937

PATIENT
  Age: 54 Year
  Sex: Male

DRUGS (4)
  1. REMICADE [Suspect]
     Active Substance: INFLIXIMAB
     Indication: COLITIS ULCERATIVE
     Dosage: CYCLICAL
     Route: 042
     Dates: start: 20180110, end: 20200127
  2. PENTACOL [Concomitant]
     Active Substance: MESALAMINE
     Indication: COLITIS
     Route: 048
  3. LAMIVUDINE. [Concomitant]
     Active Substance: LAMIVUDINE
     Route: 048
  4. ASACOL [Concomitant]
     Active Substance: MESALAMINE
     Indication: COLITIS
     Route: 048

REACTIONS (3)
  - Cough [Recovered/Resolved]
  - Foreign body in throat [Recovered/Resolved]
  - Dysphonia [Recovered/Resolved]

NARRATIVE: CASE EVENT DATE: 20200127
